FAERS Safety Report 7311976-7 (Version None)
Quarter: 2011Q1

REPORT INFORMATION
  Report Type: 
  Country: None (occurrence: None)
  Receive Date: 20110215
  Receipt Date: 20110215
  Transmission Date: 20110831
  Serious: Yes (Other)
  Sender: FDA-Public Use
  Company Number: None

PATIENT
  Sex: Female
  Weight: 88.6 kg

DRUGS (10)
  1. ZICAM COLD REMEDY MINT FLAVOR ORAL MIST MATRIX INITIATIVES, INC. DBA Z [Suspect]
     Indication: NASOPHARYNGITIS
     Dosage: TWO SPRAYS ONCE ORAL MIST
     Route: 048
     Dates: start: 20110126
  2. ROBITUSSIN DM [Concomitant]
  3. CYMBALTA [Concomitant]
  4. CELEBREX [Concomitant]
  5. PERIACTIN [Concomitant]
  6. LISINOPRIL AND HYDROCHLOROTHIAZIDE [Concomitant]
  7. VICODIN [Concomitant]
  8. PLAQUENIL [Concomitant]
  9. CRESTOR [Concomitant]
  10. LYRICA [Concomitant]

REACTIONS (3)
  - ORAL DISCOMFORT [None]
  - THROAT IRRITATION [None]
  - THERMAL BURN [None]
